FAERS Safety Report 9850836 (Version 2)
Quarter: 2014Q1

REPORT INFORMATION
  Report Type: Report from Study
  Country: JP (occurrence: JP)
  Receive Date: 20140128
  Receipt Date: 20140217
  Transmission Date: 20141002
  Serious: Yes (Death)
  Sender: FDA-Public Use
  Company Number: JP-TAKEDA-2014TJP000877

PATIENT
  Age: 70 Year
  Sex: Male
  Weight: 61 kg

DRUGS (11)
  1. PIOGLITAZONE [Suspect]
     Indication: TYPE 2 DIABETES MELLITUS
     Dosage: 15 MG, 1 DAYS
     Route: 048
     Dates: start: 20100125, end: 20100712
  2. NOVORAPID 30 MIX FLEXPEN [Concomitant]
     Indication: TYPE 2 DIABETES MELLITUS
     Dosage: 64 IU, BID
     Route: 042
     Dates: start: 20100125, end: 20100301
  3. NOVORAPID 30 MIX FLEXPEN [Concomitant]
     Dosage: 20 IU, TID
     Route: 042
     Dates: start: 20100302, end: 20100517
  4. NOVORAPID 30 MIX FLEXPEN [Concomitant]
     Dosage: 64 IU, TID
     Route: 042
     Dates: start: 20100518, end: 20100614
  5. NOVORAPID 30 MIX FLEXPEN [Concomitant]
     Dosage: 30 IU, QD
     Route: 042
     Dates: start: 20100615, end: 20100712
  6. NOVORAPID 70 MIX FLEXPEN [Concomitant]
     Indication: TYPE 2 DIABETES MELLITUS
     Dosage: 20 IU, BID
     Route: 042
     Dates: start: 20100615, end: 20100712
  7. MELBIN                             /00082702/ [Concomitant]
     Indication: TYPE 2 DIABETES MELLITUS
     Dosage: UNK
     Route: 048
     Dates: start: 20100125, end: 20100712
  8. PLAVIX [Concomitant]
     Dosage: UNK
     Route: 048
  9. LASIX                              /00032601/ [Concomitant]
     Dosage: UNK
     Route: 048
  10. MACACY-A [Concomitant]
     Dosage: UNK
     Route: 048
  11. METHYCOOL [Concomitant]
     Dosage: UNK
     Route: 048

REACTIONS (1)
  - Hepatic function abnormal [Fatal]
